FAERS Safety Report 11048666 (Version 1)
Quarter: 2015Q2

REPORT INFORMATION
  Report Type: Spontaneous
  Country: US (occurrence: US)
  Receive Date: 20150420
  Receipt Date: 20150420
  Transmission Date: 20150821
  Serious: No
  Sender: FDA-Public Use
  Company Number: US-BAYER-2015-136070

PATIENT
  Age: 51 Year
  Sex: Female

DRUGS (2)
  1. LORATADINE. [Suspect]
     Active Substance: LORATADINE
     Indication: PHARYNGEAL ERYTHEMA
     Dosage: UNK UNK, ONCE
     Route: 048
  2. LORATADINE. [Suspect]
     Active Substance: LORATADINE
     Indication: THROAT IRRITATION
     Dosage: UNK, UNK
     Route: 048
     Dates: start: 20150403

REACTIONS (6)
  - Palpitations [Not Recovered/Not Resolved]
  - Swollen tongue [Not Recovered/Not Resolved]
  - Product use issue [Unknown]
  - Anxiety [Not Recovered/Not Resolved]
  - Dry throat [Not Recovered/Not Resolved]
  - Dysphagia [Not Recovered/Not Resolved]

NARRATIVE: CASE EVENT DATE: 20150403
